FAERS Safety Report 9122939 (Version 1)
Quarter: 2013Q1

REPORT INFORMATION
  Report Type: Spontaneous
  Country: US (occurrence: US)
  Receive Date: 20130227
  Receipt Date: 20130227
  Transmission Date: 20140127
  Serious: No
  Sender: FDA-Public Use
  Company Number: US-GLAXOSMITHKLINE-A0993326A

PATIENT
  Age: 33 Year
  Sex: Female
  Weight: 70.5 kg

DRUGS (5)
  1. VALTREX [Suspect]
     Indication: HERPES VIRUS INFECTION
     Dosage: 500MG TWICE PER DAY
     Route: 048
     Dates: start: 20120531
  2. LORTAB [Concomitant]
     Indication: HEADACHE
     Dates: start: 20111201, end: 20121215
  3. GAVISCON [Concomitant]
     Indication: ILL-DEFINED DISORDER
     Route: 065
     Dates: start: 20120412
  4. REGLAN [Concomitant]
     Indication: ILL-DEFINED DISORDER
     Route: 065
     Dates: start: 20120412
  5. PROMETRIUM [Concomitant]
     Indication: PREGNANCY
     Dosage: 600MG PER DAY
     Route: 065
     Dates: start: 20111111, end: 20111129

REACTIONS (8)
  - Herpes virus infection [Recovered/Resolved]
  - Condition aggravated [Unknown]
  - Hypersensitivity [Unknown]
  - Drug ineffective [Unknown]
  - Caesarean section [Unknown]
  - Exposure during pregnancy [Unknown]
  - Live birth [Unknown]
  - Treatment noncompliance [Unknown]
